FAERS Safety Report 18630842 (Version 1)
Quarter: 2020Q4

REPORT INFORMATION
  Report Type: Report from Study
  Country: None (occurrence: CO)
  Receive Date: 20201218
  Receipt Date: 20201218
  Transmission Date: 20210114
  Serious: Yes (Disabling, Other)
  Sender: FDA-Public Use
  Company Number: CO-ABBVIE-20K-036-3398532-00

PATIENT
  Sex: Female
  Weight: 52 kg

DRUGS (2)
  1. HUMIRA [Suspect]
     Active Substance: ADALIMUMAB
     Indication: RHEUMATOID ARTHRITIS
     Route: 058
     Dates: start: 20081125
  2. HUMIRA [Suspect]
     Active Substance: ADALIMUMAB
     Indication: RHEUMATOID ARTHRITIS
     Route: 058
     Dates: start: 20200404

REACTIONS (10)
  - Rheumatoid arthritis [Not Recovered/Not Resolved]
  - Nasal pruritus [Not Recovered/Not Resolved]
  - Bone decalcification [Not Recovered/Not Resolved]
  - Influenza [Not Recovered/Not Resolved]
  - Pain [Not Recovered/Not Resolved]
  - Dry skin [Not Recovered/Not Resolved]
  - Deafness unilateral [Not Recovered/Not Resolved]
  - Gastritis [Not Recovered/Not Resolved]
  - Thyroid disorder [Not Recovered/Not Resolved]
  - Dry eye [Not Recovered/Not Resolved]

NARRATIVE: CASE EVENT DATE: 2019
